FAERS Safety Report 4551282-7 (Version None)
Quarter: 2005Q1

REPORT INFORMATION
  Report Type: 
  Country: None (occurrence: None)
  Receive Date: 20050111
  Receipt Date: 20050111
  Transmission Date: 20050727
  Serious: Yes (Other)
  Sender: FDA-Public Use
  Company Number: None

PATIENT
  Age: 18 Year
  Sex: Female
  Weight: 58.9676 kg

DRUGS (2)
  1. NAPROXEN [Suspect]
     Indication: ANALGESIC EFFECT
     Dosage: 1 TABLET   6 HOURS ORAL
     Route: 048
     Dates: start: 19920501, end: 19920601
  2. NAPROXEN [Suspect]
     Indication: DYSMENORRHOEA
     Dosage: 1 TABLET   6 HOURS ORAL
     Route: 048
     Dates: start: 19920501, end: 19920601

REACTIONS (7)
  - MOUTH ULCERATION [None]
  - MUCOSAL DISCOLOURATION [None]
  - OEDEMA MOUTH [None]
  - ORAL INTAKE REDUCED [None]
  - ORAL PAIN [None]
  - SPEECH DISORDER [None]
  - URTICARIA [None]
